FAERS Safety Report 8612765-3 (Version None)
Quarter: 2012Q3

REPORT INFORMATION
  Report Type: 
  Country: None (occurrence: None)
  Receive Date: 20120822
  Receipt Date: 20110830
  Transmission Date: 20120928
  Serious: No
  Sender: FDA-Public Use
  Company Number: US-ASTRAZENECA-2011SE52584

PATIENT
  Age: 48 Year
  Sex: Female

DRUGS (2)
  1. SEROQUEL [Suspect]
     Route: 048
  2. SYMBICORT [Suspect]
     Route: 055

REACTIONS (2)
  - MALAISE [None]
  - BIPOLAR DISORDER [None]
